FAERS Safety Report 10311048 (Version 5)
Quarter: 2014Q3

REPORT INFORMATION
  Report Type: Spontaneous
  Country: JP (occurrence: JP)
  Receive Date: 20140717
  Receipt Date: 20140930
  Transmission Date: 20150326
  Serious: Yes (Congenital Anomaly, Other)
  Sender: FDA-Public Use
  Company Number: JP-PFIZER INC-2014197379

PATIENT
  Sex: Female
  Weight: 2.76 kg

DRUGS (5)
  1. JZOLOFT [Suspect]
     Active Substance: SERTRALINE HYDROCHLORIDE
     Indication: DEPRESSION
  2. SOLANAX [Suspect]
     Active Substance: ALPRAZOLAM
     Indication: ANXIETY DISORDER
     Dosage: UNK, AS NEEDED
     Route: 064
     Dates: start: 20101214, end: 201012
  3. JZOLOFT [Suspect]
     Active Substance: SERTRALINE HYDROCHLORIDE
     Indication: ANXIETY DISORDER
     Dosage: 50 MG, 1X/DAY
     Route: 064
     Dates: start: 20101214, end: 201404
  4. SOLANAX [Suspect]
     Active Substance: ALPRAZOLAM
     Indication: DEPRESSION
     Dosage: 1.2 MG, DAILY
     Route: 064
     Dates: start: 20101228
  5. SOLANAX [Suspect]
     Active Substance: ALPRAZOLAM
     Dosage: 0.2 MG X 2 DURING DAYTIME AND 0.4 MG BEFORE BEDTIME
     Route: 064
     Dates: end: 201406

REACTIONS (2)
  - Maternal exposure during pregnancy [Unknown]
  - Cleft lip and palate [Unknown]
